FAERS Safety Report 4861756-7 (Version None)
Quarter: 2005Q4

REPORT INFORMATION
  Report Type: 
  Country: None (occurrence: None)
  Receive Date: 20051220
  Receipt Date: 20051115
  Transmission Date: 20060501
  Serious: Yes (Hospitalization)
  Sender: FDA-Public Use
  Company Number: ZA-MERCK-0511ZAF00019

PATIENT
  Age: 35 Year
  Sex: Male

DRUGS (2)
  1. INVANZ [Suspect]
     Indication: APPENDICITIS
     Route: 042
     Dates: start: 20051020, end: 20051021
  2. INVANZ [Suspect]
     Indication: PERITONITIS
     Route: 042
     Dates: start: 20051020, end: 20051021

REACTIONS (6)
  - ALANINE AMINOTRANSFERASE INCREASED [None]
  - ASPARTATE AMINOTRANSFERASE INCREASED [None]
  - BLOOD BILIRUBIN UNCONJUGATED INCREASED [None]
  - BLOOD CREATINE INCREASED [None]
  - HAEMOLYSIS [None]
  - JAUNDICE [None]
